FAERS Safety Report 9046608 (Version 2)
Quarter: 2013Q2

REPORT INFORMATION
  Report Type: Spontaneous
  Country: US (occurrence: US)
  Receive Date: 20130204
  Receipt Date: 20130501
  Transmission Date: 20140414
  Serious: Yes (Other)
  Sender: FDA-Public Use
  Company Number: US-BIOGENIDEC-2013BI003025

PATIENT
  Sex: Female

DRUGS (1)
  1. AVONEX [Suspect]
     Indication: MULTIPLE SCLEROSIS
     Route: 030
     Dates: start: 20090420

REACTIONS (9)
  - Brain neoplasm [Unknown]
  - Convulsion [Unknown]
  - Mobility decreased [Recovered/Resolved]
  - Drug intolerance [Not Recovered/Not Resolved]
  - Hypoaesthesia [Unknown]
  - Headache [Recovered/Resolved]
  - Pain [Recovered/Resolved]
  - Anxiety [Unknown]
  - Multiple sclerosis relapse [Unknown]
